FAERS Safety Report 7657403-1 (Version None)
Quarter: 2011Q3

REPORT INFORMATION
  Report Type: 
  Country: None (occurrence: None)
  Receive Date: 20110804
  Receipt Date: 20110623
  Transmission Date: 20111222
  Serious: No
  Sender: FDA-Public Use
  Company Number: US-ASTRAZENECA-2011SE35731

PATIENT
  Age: 53 Year
  Sex: Male

DRUGS (7)
  1. VITAMIN B6 [Concomitant]
  2. CLEOCIN HYDROCHLORIDE [Concomitant]
  3. MELATONIN [Concomitant]
  4. ONDANSETRON [Concomitant]
  5. VITAMIN D [Concomitant]
  6. VANDETANIB [Suspect]
     Indication: THYROID CANCER
  7. PROCHLORPERAZINE MALEATE [Concomitant]

REACTIONS (3)
  - NIGHT SWEATS [None]
  - EYE IRRITATION [None]
  - DIZZINESS [None]
